FAERS Safety Report 7293953-8 (Version None)
Quarter: 2011Q1

REPORT INFORMATION
  Report Type: 
  Country: None (occurrence: None)
  Receive Date: 20110215
  Receipt Date: 20110210
  Transmission Date: 20110831
  Serious: Yes (Other)
  Sender: FDA-Public Use
  Company Number: NO-PFIZER INC-2008042197

PATIENT
  Age: 30 Year
  Sex: Female

DRUGS (5)
  1. IMOVANE [Suspect]
     Indication: GENERALISED ANXIETY DISORDER
  2. LEVOTHYROXINE SODIUM [Concomitant]
     Dosage: 600 UG, WEEKLY
     Route: 048
  3. LYRICA [Suspect]
     Indication: GENERALISED ANXIETY DISORDER
     Route: 048
     Dates: end: 20080501
  4. LYRICA [Suspect]
     Indication: INSOMNIA
  5. IMOVANE [Suspect]
     Indication: INSOMNIA
     Route: 048
     Dates: end: 20080414

REACTIONS (4)
  - WITHDRAWAL SYNDROME [None]
  - DRUG ABUSE [None]
  - DRUG DEPENDENCE [None]
  - EUPHORIC MOOD [None]
